FAERS Safety Report 9694179 (Version 1)
Quarter: 2013Q4

REPORT INFORMATION
  Report Type: Spontaneous
  Country: US (occurrence: US)
  Receive Date: 20131118
  Receipt Date: 20131118
  Transmission Date: 20140711
  Serious: Yes (Death, Hospitalization)
  Sender: FDA-Public Use
  Company Number: US-WATSON-2013-20472

PATIENT
  Age: 89 Year
  Sex: Female
  Weight: 50 kg

DRUGS (1)
  1. SULINDAC [Suspect]
     Indication: ARTHRITIS
     Dosage: UNK UNK, UNKNOWN
     Route: 065

REACTIONS (5)
  - Cardiac arrest [Fatal]
  - Haemorrhage [Not Recovered/Not Resolved]
  - Haematemesis [Unknown]
  - Vomiting [Unknown]
  - Abdominal pain upper [Unknown]
